FAERS Safety Report 11327388 (Version 1)
Quarter: 2015Q3

REPORT INFORMATION
  Report Type: Spontaneous
  Country: US (occurrence: US)
  Receive Date: 20150731
  Receipt Date: 20150731
  Transmission Date: 20151125
  Serious: Yes (Other)
  Sender: FDA-Public Use
  Company Number: PHHY2015US089664

PATIENT
  Age: 2 Year
  Sex: Female

DRUGS (1)
  1. TACROLIMUS. [Suspect]
     Active Substance: TACROLIMUS
     Indication: ALLOGENIC BONE MARROW TRANSPLANTATION THERAPY
     Route: 065

REACTIONS (4)
  - Post transplant distal limb syndrome [Recovering/Resolving]
  - Areflexia [Recovering/Resolving]
  - Abasia [Recovering/Resolving]
  - Pain in extremity [Recovering/Resolving]
